FAERS Safety Report 4915726-0 (Version None)
Quarter: 2006Q1

REPORT INFORMATION
  Report Type: 
  Country: None (occurrence: None)
  Receive Date: 20060217
  Receipt Date: 20060216
  Transmission Date: 20060701
  Serious: No
  Sender: FDA-Public Use
  Company Number: CN-JNJFOC-20060202107

PATIENT
  Age: 43 Year
  Sex: Female

DRUGS (5)
  1. CHILDREN'S MOTRIN [Suspect]
     Route: 048
  2. CHILDREN'S MOTRIN [Suspect]
     Route: 048
  3. BETALOC [Concomitant]
     Indication: HYPERTENSION
  4. SHUANGHUANGLIAN [Concomitant]
     Indication: ANTIVIRAL PROPHYLAXIS
     Route: 048
  5. COMPOUND CHLORPHENAMINE MALEATE TABLETS [Concomitant]

REACTIONS (3)
  - ASTHENIA [None]
  - NAUSEA [None]
  - RASH [None]
